FAERS Safety Report 17904488 (Version 3)
Quarter: 2020Q3

REPORT INFORMATION
  Report Type: Report from Study
  Country: US (occurrence: US)
  Receive Date: 20200616
  Receipt Date: 20200708
  Transmission Date: 20201103
  Serious: Yes (Death, Hospitalization)
  Sender: FDA-Public Use
  Company Number: US-EXELIXIS-CABO-20029668

PATIENT
  Sex: Female

DRUGS (3)
  1. CABOMETYX [Suspect]
     Active Substance: CABOZANTINIB S-MALATE
     Indication: RENAL CELL CARCINOMA
     Dosage: 60 MG, QD
     Route: 048
     Dates: start: 202003
  2. CABOMETYX [Suspect]
     Active Substance: CABOZANTINIB S-MALATE
     Dosage: 40 MG, QD (2 TABLET OF 20 MG)
     Route: 048
     Dates: start: 202004
  3. CABOMETYX [Suspect]
     Active Substance: CABOZANTINIB S-MALATE
     Dosage: 60 MG, QD
     Route: 048
     Dates: start: 202005, end: 20200528

REACTIONS (8)
  - Candida infection [Unknown]
  - Muscular weakness [Recovering/Resolving]
  - Malignant neoplasm progression [Fatal]
  - Oesophageal oedema [Unknown]
  - Mouth swelling [Unknown]
  - Failure to thrive [Unknown]
  - Asthenia [Recovering/Resolving]
  - Vomiting [Unknown]
